FAERS Safety Report 6814030-3 (Version None)
Quarter: 2010Q3

REPORT INFORMATION
  Report Type: 
  Country: None (occurrence: None)
  Receive Date: 20100702
  Receipt Date: 20100621
  Transmission Date: 20110219
  Serious: Yes (Hospitalization)
  Sender: FDA-Public Use
  Company Number: PHHY2010BR40385

PATIENT
  Age: 59 Year
  Sex: Female
  Weight: 69 kg

DRUGS (2)
  1. COMBIPATCH [Suspect]
     Indication: HORMONE REPLACEMENT THERAPY
     Dosage: ESTALIS 50/140 MCG1 PATCH EVERY FOUR DAYS
     Route: 062
  2. ATACAND [Concomitant]
     Indication: HYPERTENSION

REACTIONS (1)
  - FOOT OPERATION [None]
